FAERS Safety Report 9729686 (Version 1)
Quarter: 2013Q4

REPORT INFORMATION
  Report Type: Spontaneous
  Country: US (occurrence: US)
  Receive Date: 20131204
  Receipt Date: 20131204
  Transmission Date: 20140711
  Serious: No
  Sender: FDA-Public Use
  Company Number: US-GILEAD-2009-0020914

PATIENT
  Age: 53 Year
  Sex: Female
  Weight: 80.29 kg

DRUGS (7)
  1. LETAIRIS [Suspect]
     Indication: PULMONARY ARTERIAL HYPERTENSION
     Route: 048
  2. PROTONIX [Concomitant]
  3. LASIX [Concomitant]
  4. AMLODIPINE [Concomitant]
  5. WARFARIN [Concomitant]
  6. METOPROLOL [Concomitant]
  7. LIPITOR [Concomitant]

REACTIONS (1)
  - Headache [Not Recovered/Not Resolved]
